FAERS Safety Report 22351919 (Version 1)
Quarter: 2023Q2

REPORT INFORMATION
  Report Type: Spontaneous
  Country: US (occurrence: None)
  Receive Date: 20230522
  Receipt Date: 20230522
  Transmission Date: 20230721
  Serious: No
  Sender: FDA-Public Use
  Company Number: None

PATIENT
  Sex: Female

DRUGS (2)
  1. OPSUMIT [Suspect]
     Active Substance: MACITENTAN
     Indication: Pulmonary hypertension
     Dosage: FREQUENCY : DAILY;?
     Route: 048
     Dates: start: 20230422
  2. UPTRAVI [Suspect]
     Active Substance: SELEXIPAG

REACTIONS (5)
  - Dyspnoea [None]
  - Dizziness [None]
  - Therapy interrupted [None]
  - Malaise [None]
  - Fluid retention [None]
